FAERS Safety Report 7622704-X (Version None)
Quarter: 2011Q3

REPORT INFORMATION
  Report Type: 
  Country: None (occurrence: None)
  Receive Date: 20110712
  Receipt Date: 20110627
  Transmission Date: 20111222
  Serious: Yes (Hospitalization)
  Sender: FDA-Public Use
  Company Number: 2011MA008118

PATIENT
  Age: 62 Year
  Sex: Male
  Weight: 71 kg

DRUGS (5)
  1. BUPIVACAINE HCL [Suspect]
     Indication: LOCAL ANAESTHESIA
     Dosage: 0.25 PCT
  2. PROPOFOL [Suspect]
     Indication: LOCAL ANAESTHESIA
     Dosage: 50 MG
  3. FENTANYL [Suspect]
     Indication: LOCAL ANAESTHESIA
     Dosage: 150 MCG
  4. VECURONIUM BROMIDE [Suspect]
     Indication: LOCAL ANAESTHESIA
     Dosage: 10 MG
  5. LIDOCAINE [Suspect]
     Indication: LOCAL ANAESTHESIA
     Dosage: 1 PTC

REACTIONS (9)
  - MYDRIASIS [None]
  - APNOEA [None]
  - PROCEDURAL COMPLICATION [None]
  - PUPILLARY LIGHT REFLEX TESTS ABNORMAL [None]
  - LOSS OF CONSCIOUSNESS [None]
  - CONVULSION [None]
  - DELAYED RECOVERY FROM ANAESTHESIA [None]
  - TOXICITY TO VARIOUS AGENTS [None]
  - NEUROTOXICITY [None]
